FAERS Safety Report 9849793 (Version 3)
Quarter: 2014Q1

REPORT INFORMATION
  Report Type: Spontaneous
  Country: TR (occurrence: TR)
  Receive Date: 20140128
  Receipt Date: 20140210
  Transmission Date: 20141002
  Serious: Yes (Life-Threatening, Other)
  Sender: FDA-Public Use
  Company Number: TR-BAYER-2013-157927

PATIENT
  Age: 43 Year
  Sex: Female

DRUGS (2)
  1. MIRENA [Suspect]
     Indication: MENSTRUAL CYCLE MANAGEMENT
     Dosage: 20 MCG/24HR, CONT
     Route: 015
     Dates: start: 2013
  2. MIRENA [Suspect]
     Indication: ANAEMIA

REACTIONS (8)
  - Pregnancy with contraceptive device [None]
  - Poisoning [None]
  - Drug ineffective [None]
  - Depression [None]
  - Menstruation delayed [None]
  - Psychological trauma [None]
  - Depressed mood [None]
  - Abnormal behaviour [None]
